FAERS Safety Report 14503204 (Version 1)
Quarter: 2018Q1

REPORT INFORMATION
  Report Type: Spontaneous
  Country: US (occurrence: US)
  Receive Date: 20180208
  Receipt Date: 20180208
  Transmission Date: 20180509
  Serious: No
  Sender: FDA-Public Use
  Company Number: US-PFIZER INC-2018053228

PATIENT
  Age: 74 Year
  Sex: Female

DRUGS (1)
  1. LYRICA [Suspect]
     Active Substance: PREGABALIN
     Indication: PAIN
     Dosage: 25 MG, UNK

REACTIONS (7)
  - Drug effect incomplete [Unknown]
  - Eye pain [Unknown]
  - Ocular hyperaemia [Unknown]
  - Renal pain [Unknown]
  - Arthralgia [Unknown]
  - Muscle spasms [Unknown]
  - Lethargy [Unknown]
